FAERS Safety Report 14951996 (Version 1)
Quarter: 2018Q2

REPORT INFORMATION
  Report Type: Spontaneous
  Country: ZA (occurrence: ZA)
  Receive Date: 20180530
  Receipt Date: 20180530
  Transmission Date: 20180711
  Serious: Yes (Hospitalization)
  Sender: FDA-Public Use
  Company Number: ZA-PFIZER INC-2018216212

PATIENT
  Age: 83 Year
  Sex: Female

DRUGS (8)
  1. VOLTAREN [Suspect]
     Active Substance: DICLOFENAC SODIUM
     Dosage: 100 MG, UNK
  2. COVERAM [Suspect]
     Active Substance: AMLODIPINE\PERINDOPRIL
     Dosage: 5/10MG
  3. CARDURA XL [Suspect]
     Active Substance: DOXAZOSIN MESYLATE
     Dosage: 8 MG, UNK
  4. XANOR [Suspect]
     Active Substance: ALPRAZOLAM
     Dosage: 0.5 MG, UNK
  5. BILOCOR [Suspect]
     Active Substance: BISOPROLOL FUMARATE
     Dosage: 10 MG, UNK
  6. FORTZAAR [Suspect]
     Active Substance: HYDROCHLOROTHIAZIDE\LOSARTAN POTASSIUM
     Dosage: 100/25 MG
  7. PURICOS [Suspect]
     Active Substance: ALLOPURINOL
     Dosage: 300 MG, UNK
  8. NEXMEZOL [Suspect]
     Active Substance: ESOMEPRAZOLE MAGNESIUM
     Dosage: 40 MG, UNK

REACTIONS (2)
  - Aneurysm [Unknown]
  - Cardiac disorder [Unknown]
